FAERS Safety Report 16037023 (Version 4)
Quarter: 2019Q2

REPORT INFORMATION
  Report Type: Not Available
  Country: US (occurrence: US)
  Receive Date: 20190305
  Receipt Date: 20190530
  Transmission Date: 20190711
  Serious: No
  Sender: FDA-Public Use
  Company Number: US-NEUROCRINE BIOSCIENCES INC.-2019NBI00475

PATIENT
  Age: 76 Year
  Sex: Female

DRUGS (8)
  1. INGREZZA [Suspect]
     Active Substance: VALBENAZINE
     Indication: TARDIVE DYSKINESIA
     Route: 048
     Dates: start: 20181218, end: 20181225
  2. PAROXETINE. [Concomitant]
     Active Substance: PAROXETINE
  3. INGREZZA [Suspect]
     Active Substance: VALBENAZINE
     Route: 048
  4. LORAZEPAM. [Concomitant]
     Active Substance: LORAZEPAM
  5. INGREZZA [Suspect]
     Active Substance: VALBENAZINE
     Route: 048
     Dates: start: 20181226
  6. CARVEDILOL. [Concomitant]
     Active Substance: CARVEDILOL
  7. PRIMIDONE. [Concomitant]
     Active Substance: PRIMIDONE
  8. ZOLPIDEM [Concomitant]
     Active Substance: ZOLPIDEM\ZOLPIDEM TARTRATE

REACTIONS (4)
  - Fatigue [Recovered/Resolved]
  - Parkinsonism [Recovered/Resolved]
  - Depression [Recovered/Resolved]
  - Bradykinesia [Recovered/Resolved]

NARRATIVE: CASE EVENT DATE: 20181130
